FAERS Safety Report 8826138 (Version 1)
Quarter: 2012Q4

REPORT INFORMATION
  Report Type: 
  Country: CA (occurrence: CA)
  Receive Date: 20121008
  Receipt Date: 20121008
  Transmission Date: 20130627
  Serious: Yes (Hospitalization, Other)
  Sender: FDA-Public Use
  Company Number: CA-JNJFOC-20120913390

PATIENT
  Age: 22 Day
  Sex: Male
  Weight: 4.1 kg

DRUGS (2)
  1. ACETAMINOPHEN [Suspect]
     Route: 048
  2. ACETAMINOPHEN [Suspect]
     Indication: PAIN
     Dosage: 10ml
     Route: 048

REACTIONS (3)
  - Overdose [Recovered/Resolved]
  - Incorrect dose administered [Unknown]
  - Product label issue [Unknown]
